FAERS Safety Report 5665117-2 (Version None)
Quarter: 2008Q1

REPORT INFORMATION
  Report Type: 
  Country: None (occurrence: None)
  Receive Date: 20080314
  Receipt Date: 20080304
  Transmission Date: 20080703
  Serious: Yes (Other)
  Sender: FDA-Public Use
  Company Number: US-PFIZER INC-2008021194

PATIENT
  Age: 37 Year
  Sex: Female

DRUGS (1)
  1. ARTHROTEC [Suspect]

REACTIONS (1)
  - BILIARY CIRRHOSIS [None]
